FAERS Safety Report 12079927 (Version 1)
Quarter: 2016Q1

REPORT INFORMATION
  Report Type: Spontaneous
  Country: US (occurrence: None)
  Receive Date: 20160212
  Receipt Date: 20160212
  Transmission Date: 20160526
  Serious: Yes (Hospitalization)
  Sender: FDA-Public Use
  Company Number: None

PATIENT
  Age: 52 Year
  Sex: Male

DRUGS (14)
  1. STRIBILD [Suspect]
     Active Substance: COBICISTAT\ELVITEGRAVIR\EMTRICITABINE\TENOFOVIR DISOPROXIL FUMARATE
     Indication: HIV INFECTION
     Dosage: 150-150-200-300MG DAILY ORAL
     Route: 048
     Dates: end: 2016
  2. AZITHROMYCIN ANHYDROUS. [Concomitant]
     Active Substance: AZITHROMYCIN ANHYDROUS
  3. TRAZODONE [Concomitant]
     Active Substance: TRAZODONE HYDROCHLORIDE
  4. DIPHENHYDRAM [Concomitant]
  5. OXYCODONE [Concomitant]
     Active Substance: OXYCODONE
  6. DOCQLACE [Concomitant]
     Active Substance: DOCUSATE SODIUM
  7. DIVALPROEX [Concomitant]
     Active Substance: DIVALPROEX SODIUM
  8. ONDANSETRON [Concomitant]
     Active Substance: ONDANSETRON
  9. A-HYDROCORT [Concomitant]
     Active Substance: HYDROCORTISONE SODIUM SUCCINATE
  10. MORPHINE [Concomitant]
     Active Substance: MORPHINE
  11. SUCRALFATE. [Concomitant]
     Active Substance: SUCRALFATE
  12. NASACORT [Concomitant]
     Active Substance: TRIAMCINOLONE ACETONIDE
  13. PROMETHAZINE [Concomitant]
     Active Substance: PROMETHAZINE\PROMETHAZINE HYDROCHLORIDE
  14. VENTOLIN [Concomitant]
     Active Substance: ALBUTEROL SULFATE

REACTIONS (1)
  - Mental disorder [None]

NARRATIVE: CASE EVENT DATE: 2016
